FAERS Safety Report 25209053 (Version 1)
Quarter: 2025Q2

REPORT INFORMATION
  Report Type: Spontaneous
  Country: US (occurrence: None)
  Receive Date: 20250417
  Receipt Date: 20250417
  Transmission Date: 20250717
  Serious: Yes (Other)
  Sender: FDA-CTU
  Company Number: None

PATIENT
  Age: 42 Year
  Sex: Female
  Weight: 76.5 kg

DRUGS (4)
  1. DULOXETINE [Suspect]
     Active Substance: DULOXETINE
     Indication: Anxiety
     Dates: start: 20240613, end: 20250127
  2. CLARITIN [Concomitant]
     Active Substance: LORATADINE
  3. B12 [Concomitant]
  4. VITAMIN D3 [Concomitant]
     Active Substance: CHOLECALCIFEROL

REACTIONS (23)
  - Discomfort [None]
  - Headache [None]
  - Nausea [None]
  - Vertigo [None]
  - Temperature intolerance [None]
  - Chills [None]
  - Myalgia [None]
  - Paraesthesia oral [None]
  - Paraesthesia [None]
  - Decreased appetite [None]
  - Diarrhoea [None]
  - Vomiting [None]
  - Cough [None]
  - Malaise [None]
  - Influenza [None]
  - Pyrexia [None]
  - Parosmia [None]
  - Dry eye [None]
  - Lacrimation increased [None]
  - Vision blurred [None]
  - Heart rate increased [None]
  - Blood pressure increased [None]
  - Therapy interrupted [None]

NARRATIVE: CASE EVENT DATE: 20250127
